FAERS Safety Report 4795109-7 (Version None)
Quarter: 2005Q4

REPORT INFORMATION
  Report Type: 
  Country: None (occurrence: None)
  Receive Date: 20051006
  Receipt Date: 20050927
  Transmission Date: 20060501
  Serious: Yes (Other)
  Sender: FDA-Public Use
  Company Number: 2005-09-1475

PATIENT
  Age: 68 Year
  Sex: Male

DRUGS (3)
  1. PEG-INTRON [Suspect]
     Indication: HEPATITIS C
     Dosage: 80 MCG QW SUBCUTANEOUS
     Route: 058
     Dates: start: 20041108, end: 20050926
  2. RIBAVIRIN [Suspect]
     Indication: HEPATITIS C
     Dosage: 5=400 MG QD ORAL
     Route: 048
     Dates: start: 20041108, end: 50050926
  3. OMEPRAZOLE [Concomitant]

REACTIONS (4)
  - ALPHA 1 FOETOPROTEIN INCREASED [None]
  - CHOLELITHIASIS [None]
  - HEPATOCELLULAR DAMAGE [None]
  - RED BLOOD CELL SEDIMENTATION RATE INCREASED [None]
